FAERS Safety Report 9037570 (Version 2)
Quarter: 2013Q1

REPORT INFORMATION
  Report Type: Spontaneous
  Country: US (occurrence: US)
  Receive Date: 20130129
  Receipt Date: 20130215
  Transmission Date: 20140127
  Serious: No
  Sender: FDA-Public Use
  Company Number: US-009507513-1301USA011077

PATIENT
  Age: 21 Year
  Sex: Female
  Weight: 91.61 kg

DRUGS (2)
  1. NEXPLANON [Suspect]
     Dosage: UNK
     Dates: start: 20130121, end: 2013
  2. NEXPLANON [Suspect]
     Dosage: 1 UNK, UNK
     Route: 059
     Dates: start: 2013

REACTIONS (3)
  - Device difficult to use [Recovered/Resolved]
  - Device deployment issue [Unknown]
  - No adverse event [Unknown]
